FAERS Safety Report 7894219-5 (Version None)
Quarter: 2011Q4

REPORT INFORMATION
  Report Type: 
  Country: None (occurrence: None)
  Receive Date: 20111104
  Receipt Date: 20111028
  Transmission Date: 20120403
  Serious: Yes (Hospitalization)
  Sender: FDA-Public Use
  Company Number: PHHO2011CA12519

PATIENT
  Age: 61 Year
  Sex: Female
  Weight: 70 kg

DRUGS (4)
  1. EVEROLIMUS [Suspect]
     Dosage: 1/0.75 MG, BID
     Dates: start: 20090313, end: 20090427
  2. EVEROLIMUS [Suspect]
     Dosage: 1 MG, BID
     Dates: start: 20090428
  3. EVEROLIMUS [Suspect]
     Indication: ORGAN TRANSPLANT
     Dosage: 1 MG, BID
     Route: 048
     Dates: start: 20081222, end: 20090219
  4. EVEROLIMUS [Suspect]
     Dosage: 0.75 MG, BID
     Dates: start: 20090220, end: 20090312

REACTIONS (2)
  - FUNGAL INFECTION [None]
  - INTERSTITIAL LUNG DISEASE [None]
